FAERS Safety Report 4416951-8 (Version None)
Quarter: 2004Q3

REPORT INFORMATION
  Report Type: 
  Country: None (occurrence: None)
  Receive Date: 20040806
  Receipt Date: 20040802
  Transmission Date: 20050211
  Serious: Yes (Life-Threatening)
  Sender: FDA-Public Use
  Company Number: PHBS2004JP10205

PATIENT
  Age: 50 Year
  Sex: Female

DRUGS (5)
  1. NEORAL [Suspect]
     Indication: PSORIASIS
     Dosage: 250 MG/D
     Route: 048
     Dates: start: 20040603, end: 20040606
  2. NEORAL [Suspect]
     Dosage: 150 MG/D
     Route: 048
     Dates: start: 20040607, end: 20040705
  3. ZYRTEC [Concomitant]
  4. LOXONIN [Concomitant]
     Dates: end: 20040712
  5. MUCOSTA [Concomitant]
     Dates: end: 20040712

REACTIONS (1)
  - IDIOPATHIC THROMBOCYTOPENIC PURPURA [None]
